FAERS Safety Report 9130079 (Version 1)
Quarter: 2013Q1

REPORT INFORMATION
  Report Type: Spontaneous
  Country: US (occurrence: US)
  Receive Date: 20130228
  Receipt Date: 20130228
  Transmission Date: 20140127
  Serious: No
  Sender: FDA-Public Use
  Company Number: US-ABBOTT-12P-163-1008024-00

PATIENT
  Sex: Male
  Weight: 104.42 kg

DRUGS (10)
  1. ANDROGEL [Suspect]
     Indication: BLOOD TESTOSTERONE DECREASED
     Dosage: 3 PUMP ACTUATIONS PER DAY
     Dates: start: 201205
  2. ANDROGEL [Suspect]
     Dates: start: 201205
  3. ATENOLOL [Concomitant]
     Indication: HYPERTENSION
  4. LISINOPRIL [Concomitant]
     Indication: HYPERTENSION
  5. ASPIRIN [Concomitant]
     Indication: PRODUCT USED FOR UNKNOWN INDICATION
  6. PAIN MEDICATION [Concomitant]
     Indication: NEURALGIA
  7. ZANTAC [Concomitant]
     Indication: FLATULENCE
  8. ALBUTEROL [Concomitant]
     Indication: ASTHMA
  9. FLOVENT [Concomitant]
     Indication: ASTHMA
  10. SERAX [Concomitant]
     Indication: NEURALGIA

REACTIONS (1)
  - Asthenia [Not Recovered/Not Resolved]
